FAERS Safety Report 16405943 (Version 2)
Quarter: 2020Q4

REPORT INFORMATION
  Report Type: Spontaneous
  Country: US (occurrence: US)
  Receive Date: 20190607
  Receipt Date: 20201110
  Transmission Date: 20210113
  Serious: Yes (Other)
  Sender: FDA-Public Use
  Company Number: US-ASTRAZENECA-2019SE82647

PATIENT
  Age: 20504 Day
  Sex: Female

DRUGS (80)
  1. PRILOSEC [Suspect]
     Active Substance: OMEPRAZOLE MAGNESIUM
     Indication: COMPLICATION ASSOCIATED WITH DEVICE
     Route: 048
     Dates: start: 20130930, end: 20180618
  2. PRILOSEC [Suspect]
     Active Substance: OMEPRAZOLE MAGNESIUM
     Indication: COMPLICATION ASSOCIATED WITH DEVICE
     Dosage: GENERIC
     Route: 065
     Dates: start: 20130930
  3. PRILOSEC [Suspect]
     Active Substance: OMEPRAZOLE MAGNESIUM
     Indication: ABDOMINAL DISCOMFORT
     Dosage: GENERIC
     Route: 065
     Dates: start: 20131125
  4. PROTONIX [Suspect]
     Active Substance: PANTOPRAZOLE SODIUM
     Indication: DYSPEPSIA
     Route: 065
     Dates: start: 2009, end: 2019
  5. NORCO [Concomitant]
     Active Substance: ACETAMINOPHEN\HYDROCODONE BITARTRATE
     Indication: ABDOMINAL PAIN UPPER
     Route: 065
     Dates: start: 2009, end: 2019
  6. ACETAMINOPHEN. [Concomitant]
     Active Substance: ACETAMINOPHEN
  7. CLONAZEPAM. [Concomitant]
     Active Substance: CLONAZEPAM
  8. DICYCLOMINE [Concomitant]
     Active Substance: DICYCLOMINE HYDROCHLORIDE
  9. SIMVASTATIN. [Concomitant]
     Active Substance: SIMVASTATIN
  10. MOVIPREP [Concomitant]
     Active Substance: ASCORBIC ACID\POLYETHYLENE GLYCOL 3350\POTASSIUM CHLORIDE\SODIUM ASCORBATE\SODIUM CHLORIDE\SODIUM SULFATE
  11. AMOX/K CLAV [Concomitant]
     Active Substance: AMOXICILLIN\CLAVULANATE POTASSIUM
  12. TAMIFLU [Concomitant]
     Active Substance: OSELTAMIVIR PHOSPHATE
  13. PRILOSEC [Suspect]
     Active Substance: OMEPRAZOLE MAGNESIUM
     Indication: DYSPEPSIA
     Dosage: GENERIC
     Route: 065
     Dates: start: 2009, end: 2019
  14. PRILOSEC [Suspect]
     Active Substance: OMEPRAZOLE MAGNESIUM
     Indication: COMPLICATION ASSOCIATED WITH DEVICE
     Dosage: GENERIC
     Route: 065
     Dates: start: 20131030
  15. PRILOSEC [Suspect]
     Active Substance: OMEPRAZOLE MAGNESIUM
     Indication: COMPLICATION ASSOCIATED WITH DEVICE
     Dosage: GENERIC
     Route: 065
     Dates: start: 20131125
  16. PROTONIX [Suspect]
     Active Substance: PANTOPRAZOLE SODIUM
     Indication: COMPLICATION ASSOCIATED WITH DEVICE
     Route: 065
     Dates: start: 2009, end: 2019
  17. CLARITIN [Concomitant]
     Active Substance: LORATADINE
     Indication: HYPERSENSITIVITY
     Route: 065
     Dates: start: 2014, end: 2019
  18. CEFUROXIME. [Concomitant]
     Active Substance: CEFUROXIME
  19. CYMBALTA [Concomitant]
     Active Substance: DULOXETINE HYDROCHLORIDE
  20. ZOLPIDEM [Concomitant]
     Active Substance: ZOLPIDEM TARTRATE
  21. GABAPENTIN. [Concomitant]
     Active Substance: GABAPENTIN
  22. IBUPROFEN. [Concomitant]
     Active Substance: IBUPROFEN
  23. PRILOSEC [Suspect]
     Active Substance: OMEPRAZOLE MAGNESIUM
     Indication: ABDOMINAL DISCOMFORT
     Route: 048
     Dates: start: 20130930, end: 20180618
  24. PRILOSEC [Suspect]
     Active Substance: OMEPRAZOLE MAGNESIUM
     Indication: DYSPEPSIA
     Dosage: GENERIC
     Route: 065
     Dates: start: 20131030
  25. PRILOSEC [Suspect]
     Active Substance: OMEPRAZOLE MAGNESIUM
     Indication: DYSPEPSIA
     Dosage: GENERIC
     Route: 065
     Dates: start: 20131030
  26. PRILOSEC [Suspect]
     Active Substance: OMEPRAZOLE MAGNESIUM
     Indication: COMPLICATION ASSOCIATED WITH DEVICE
     Dosage: GENERIC
     Route: 065
     Dates: start: 20140227
  27. PROMETHAZINE [Concomitant]
     Active Substance: PROMETHAZINE HYDROCHLORIDE
  28. HYDROCODONE-ACETAMINOPHEN [Concomitant]
     Active Substance: ACETAMINOPHEN\HYDROCODONE
  29. METHYLPRED [Concomitant]
     Active Substance: METHYLPREDNISOLONE
  30. CEFDINIR. [Concomitant]
     Active Substance: CEFDINIR
  31. CYMBALTA [Concomitant]
     Active Substance: DULOXETINE HYDROCHLORIDE
  32. PRILOSEC [Suspect]
     Active Substance: OMEPRAZOLE MAGNESIUM
     Indication: DYSPEPSIA
     Dosage: GENERIC
     Route: 065
     Dates: start: 20131125
  33. PRILOSEC [Suspect]
     Active Substance: OMEPRAZOLE MAGNESIUM
     Indication: DYSPEPSIA
     Dosage: GENERIC
     Route: 065
     Dates: start: 20140227
  34. DEXILANT [Suspect]
     Active Substance: DEXLANSOPRAZOLE
     Route: 065
  35. LEVOFLOXACIN. [Concomitant]
     Active Substance: LEVOFLOXACIN
  36. CEPHALEXIN. [Concomitant]
     Active Substance: CEPHALEXIN
  37. PHENAZOPYRID [Concomitant]
  38. PRILOSEC [Suspect]
     Active Substance: OMEPRAZOLE MAGNESIUM
     Indication: DYSPEPSIA
     Route: 048
     Dates: start: 20130930, end: 20180618
  39. PRILOSEC [Suspect]
     Active Substance: OMEPRAZOLE MAGNESIUM
     Indication: COMPLICATION ASSOCIATED WITH DEVICE
     Dosage: GENERIC
     Route: 065
     Dates: start: 2009, end: 2019
  40. PRILOSEC [Suspect]
     Active Substance: OMEPRAZOLE MAGNESIUM
     Indication: ABDOMINAL DISCOMFORT
     Dosage: GENERIC
     Route: 065
     Dates: start: 2009, end: 2019
  41. PRILOSEC [Suspect]
     Active Substance: OMEPRAZOLE MAGNESIUM
     Indication: COMPLICATION ASSOCIATED WITH DEVICE
     Dosage: GENERIC
     Route: 065
     Dates: start: 2009, end: 2019
  42. PRILOSEC [Suspect]
     Active Substance: OMEPRAZOLE MAGNESIUM
     Indication: DYSPEPSIA
     Dosage: GENERIC
     Route: 065
     Dates: start: 20130930
  43. PRILOSEC [Suspect]
     Active Substance: OMEPRAZOLE MAGNESIUM
     Indication: ABDOMINAL DISCOMFORT
     Dosage: GENERIC
     Route: 065
     Dates: start: 20140227
  44. PROTONIX [Suspect]
     Active Substance: PANTOPRAZOLE SODIUM
     Indication: DYSPEPSIA
     Dosage: GENERIC
     Route: 065
     Dates: start: 2009, end: 2010
  45. PROTONIX [Suspect]
     Active Substance: PANTOPRAZOLE SODIUM
     Indication: ABDOMINAL DISCOMFORT
     Dosage: GENERIC
     Route: 065
     Dates: start: 2009, end: 2010
  46. CHLORPROMAZINE. [Concomitant]
     Active Substance: CHLORPROMAZINE
  47. PRILOSEC [Suspect]
     Active Substance: OMEPRAZOLE MAGNESIUM
     Indication: DYSPEPSIA
     Dosage: GENERIC
     Route: 065
     Dates: start: 2009, end: 2019
  48. PRILOSEC [Suspect]
     Active Substance: OMEPRAZOLE MAGNESIUM
     Indication: ABDOMINAL DISCOMFORT
     Dosage: GENERIC
     Route: 065
     Dates: start: 20131030
  49. PRILOSEC [Suspect]
     Active Substance: OMEPRAZOLE MAGNESIUM
     Indication: COMPLICATION ASSOCIATED WITH DEVICE
     Dosage: GENERIC
     Route: 065
     Dates: start: 20131030
  50. PRILOSEC [Suspect]
     Active Substance: OMEPRAZOLE MAGNESIUM
     Indication: ABDOMINAL DISCOMFORT
     Dosage: GENERIC
     Route: 065
     Dates: start: 20131125
  51. PRILOSEC [Suspect]
     Active Substance: OMEPRAZOLE MAGNESIUM
     Indication: COMPLICATION ASSOCIATED WITH DEVICE
     Dosage: GENERIC
     Route: 065
     Dates: start: 20131125
  52. PRILOSEC OTC [Suspect]
     Active Substance: OMEPRAZOLE MAGNESIUM
     Route: 048
     Dates: start: 20130930, end: 20180618
  53. PROTONIX [Suspect]
     Active Substance: PANTOPRAZOLE SODIUM
     Indication: ABDOMINAL DISCOMFORT
     Route: 065
     Dates: start: 2009, end: 2019
  54. PROTONIX [Suspect]
     Active Substance: PANTOPRAZOLE SODIUM
     Indication: COMPLICATION ASSOCIATED WITH DEVICE
     Dosage: GENERIC
     Route: 065
     Dates: start: 2009, end: 2010
  55. TRAZODONE [Concomitant]
     Active Substance: TRAZODONE HYDROCHLORIDE
     Indication: SLEEP DISORDER
     Route: 065
     Dates: start: 2009, end: 2019
  56. MORPHINE [Concomitant]
     Active Substance: MORPHINE
     Indication: COMPLICATION ASSOCIATED WITH DEVICE
     Route: 065
     Dates: start: 2015, end: 2019
  57. NITROFURANTOIN. [Concomitant]
     Active Substance: NITROFURANTOIN
  58. ONDANSETRON [Concomitant]
     Active Substance: ONDANSETRON
  59. BENZONATATE. [Concomitant]
     Active Substance: BENZONATATE
  60. ZOLPIDEM [Concomitant]
     Active Substance: ZOLPIDEM TARTRATE
  61. KLOR-CON [Concomitant]
     Active Substance: POTASSIUM CHLORIDE
  62. AMITRIPTYLINE [Concomitant]
     Active Substance: AMITRIPTYLINE
  63. PRILOSEC [Suspect]
     Active Substance: OMEPRAZOLE MAGNESIUM
     Indication: ABDOMINAL DISCOMFORT
     Dosage: GENERIC
     Route: 065
     Dates: start: 2009, end: 2019
  64. XANAX [Concomitant]
     Active Substance: ALPRAZOLAM
     Indication: ANXIETY
     Route: 065
     Dates: start: 2009, end: 2019
  65. CIPRO [Concomitant]
     Active Substance: CIPROFLOXACIN HYDROCHLORIDE
  66. MELOXICAM. [Concomitant]
     Active Substance: MELOXICAM
  67. PHENAZOPYRID [Concomitant]
  68. CARISOPRODOL. [Concomitant]
     Active Substance: CARISOPRODOL
  69. CARISOPRODOL. [Concomitant]
     Active Substance: CARISOPRODOL
  70. MECLIZINE [Concomitant]
     Active Substance: MECLIZINE HYDROCHLORIDE
  71. CETRIZINE [Concomitant]
     Active Substance: CETIRIZINE HYDROCHLORIDE
  72. PRILOSEC [Suspect]
     Active Substance: OMEPRAZOLE MAGNESIUM
     Indication: ABDOMINAL DISCOMFORT
     Dosage: GENERIC
     Route: 065
     Dates: start: 20130930
  73. PRILOSEC [Suspect]
     Active Substance: OMEPRAZOLE MAGNESIUM
     Indication: ABDOMINAL DISCOMFORT
     Dosage: GENERIC
     Route: 065
     Dates: start: 20131030
  74. PRILOSEC [Suspect]
     Active Substance: OMEPRAZOLE MAGNESIUM
     Indication: DYSPEPSIA
     Dosage: GENERIC
     Route: 065
     Dates: start: 20131125
  75. AMOXICILLIN. [Concomitant]
     Active Substance: AMOXICILLIN
  76. NAPROXEN. [Concomitant]
     Active Substance: NAPROXEN
  77. DICYCLOMINE [Concomitant]
     Active Substance: DICYCLOMINE HYDROCHLORIDE
  78. POLYETHYLENE GLYCOL [Concomitant]
     Active Substance: POLYETHYLENE GLYCOLS
  79. CEFUROXIME. [Concomitant]
     Active Substance: CEFUROXIME
  80. CLARITHROMYCIN. [Concomitant]
     Active Substance: CLARITHROMYCIN

REACTIONS (4)
  - Impaired gastric emptying [Unknown]
  - Renal failure [Not Recovered/Not Resolved]
  - Pancreatitis chronic [Unknown]
  - Acute kidney injury [Unknown]

NARRATIVE: CASE EVENT DATE: 20170306
